FAERS Safety Report 18027274 (Version 2)
Quarter: 2020Q3

REPORT INFORMATION
  Report Type: Other
  Country: IT (occurrence: IT)
  Receive Date: 20200716
  Receipt Date: 20200729
  Transmission Date: 20201103
  Serious: Yes (Hospitalization)
  Sender: FDA-Public Use
  Company Number: IT-INCYTE CORPORATION-2020IN006407

PATIENT

DRUGS (2)
  1. JAKAVI [Suspect]
     Active Substance: RUXOLITINIB
     Indication: COVID-19 PNEUMONIA
     Dosage: 10 MG, QD
     Route: 048
     Dates: start: 20200408, end: 20200424
  2. PREDNISONE. [Concomitant]
     Active Substance: PREDNISONE
     Indication: COVID-19
     Dosage: 25 MG, QD
     Route: 048
     Dates: start: 20200404, end: 20200515

REACTIONS (3)
  - Off label use [Recovered/Resolved]
  - Fungal infection [Recovered/Resolved]
  - Pneumonitis [Recovered/Resolved]

NARRATIVE: CASE EVENT DATE: 20200430
